FAERS Safety Report 24849650 (Version 1)
Quarter: 2025Q1

REPORT INFORMATION
  Report Type: Spontaneous
  Country: US (occurrence: None)
  Receive Date: 20250115
  Receipt Date: 20250115
  Transmission Date: 20250409
  Serious: Yes (Life-Threatening, Hospitalization, Disabling)
  Sender: FDA-CTU
  Company Number: None

PATIENT
  Age: 73 Year
  Sex: Male
  Weight: 156 kg

DRUGS (3)
  1. BACLOFEN [Suspect]
     Active Substance: BACLOFEN
     Indication: Musculoskeletal pain
     Route: 048
     Dates: end: 20250101
  2. GABAPENTIN [Suspect]
     Active Substance: GABAPENTIN
     Indication: Neuropathy peripheral
     Dosage: FREQUENCY : 3 TIMES A DAY;?
     Route: 048
     Dates: end: 20250108
  3. SERTRALINE [Suspect]
     Active Substance: SERTRALINE HYDROCHLORIDE

REACTIONS (13)
  - Mental status changes [None]
  - Diarrhoea [None]
  - Asthenia [None]
  - Acute kidney injury [None]
  - Hypovolaemia [None]
  - Polyuria [None]
  - Encephalopathy [None]
  - Condition aggravated [None]
  - Blood glucose decreased [None]
  - Dyspnoea [None]
  - Unresponsive to stimuli [None]
  - Acute respiratory failure [None]
  - Hypoxia [None]

NARRATIVE: CASE EVENT DATE: 20250101
